FAERS Safety Report 15434848 (Version 1)
Quarter: 2018Q3

REPORT INFORMATION
  Report Type: Spontaneous
  Country: US (occurrence: US)
  Receive Date: 20180921
  Receipt Date: 20180921
  Transmission Date: 20181010
  Serious: Yes (Hospitalization)
  Sender: FDA-Public Use
  Company Number: None

PATIENT
  Age: 61 Year
  Sex: Male
  Weight: 70 kg

DRUGS (1)
  1. IBUROFEN [Suspect]
     Active Substance: IBUPROFEN
     Indication: PAIN
     Route: 048
     Dates: start: 20180519, end: 20180523

REACTIONS (6)
  - Hypotension [None]
  - Duodenal ulcer haemorrhage [None]
  - Gastric haemorrhage [None]
  - Haemoglobin decreased [None]
  - Chronic obstructive pulmonary disease [None]
  - Alcohol use [None]

NARRATIVE: CASE EVENT DATE: 20180521
